FAERS Safety Report 14920322 (Version 2)
Quarter: 2022Q4

REPORT INFORMATION
  Report Type: Spontaneous
  Country: US (occurrence: None)
  Receive Date: 20180521
  Receipt Date: 20221206
  Transmission Date: 20230112
  Serious: Yes (Hospitalization, Other)
  Sender: FDA-Public Use
  Company Number: 2018SE63954

PATIENT
  Age: 17285 Day
  Sex: Female
  Weight: 74.8 kg

DRUGS (39)
  1. PRILOSEC [Suspect]
     Active Substance: OMEPRAZOLE MAGNESIUM
     Indication: Gastrooesophageal reflux disease
     Route: 048
     Dates: start: 2000
  2. PRILOSEC [Suspect]
     Active Substance: OMEPRAZOLE MAGNESIUM
     Indication: Gastrooesophageal reflux disease
     Dosage: GENERIC
     Route: 065
     Dates: start: 2000
  3. PRILOSEC [Suspect]
     Active Substance: OMEPRAZOLE MAGNESIUM
     Indication: Gastrooesophageal reflux disease
     Route: 048
     Dates: start: 2001
  4. PREVACID [Suspect]
     Active Substance: LANSOPRAZOLE
     Indication: Gastrooesophageal reflux disease
     Route: 065
     Dates: start: 2000
  5. PREVACID [Suspect]
     Active Substance: LANSOPRAZOLE
     Indication: Gastrooesophageal reflux disease
     Route: 065
     Dates: start: 2000
  6. PREVACID [Suspect]
     Active Substance: LANSOPRAZOLE
     Indication: Gastrooesophageal reflux disease
     Route: 065
     Dates: start: 20071016, end: 20080520
  7. SULFAMETHOXAZOLE [Concomitant]
     Active Substance: SULFAMETHOXAZOLE
     Dates: start: 20061108, end: 20070207
  8. NASONEX [Concomitant]
     Active Substance: MOMETASONE FUROATE
     Dates: start: 20070207, end: 20080801
  9. LORATADINE [Concomitant]
     Active Substance: LORATADINE
     Dates: start: 20070207, end: 20070814
  10. LORATADINE [Concomitant]
     Active Substance: LORATADINE
     Dates: start: 20071016, end: 20081001
  11. HYDROCHLOROTHIAZIDE [Concomitant]
     Active Substance: HYDROCHLOROTHIAZIDE
     Dates: start: 20070207, end: 20070814
  12. DICYCLOMINE [Concomitant]
     Active Substance: DICYCLOMINE HYDROCHLORIDE
     Dates: start: 20070817
  13. LISINOPRIL [Concomitant]
     Active Substance: LISINOPRIL
     Dates: start: 20070817
  14. ATENOLOL [Concomitant]
     Active Substance: ATENOLOL
     Dates: start: 20070830
  15. DIOVAN [Concomitant]
     Active Substance: VALSARTAN
     Dates: start: 20071016, end: 20081001
  16. AVELOX [Concomitant]
     Active Substance: MOXIFLOXACIN HYDROCHLORIDE
     Dates: start: 20080326
  17. ACETAMINOPHEN [Concomitant]
     Active Substance: ACETAMINOPHEN
     Indication: Headache
  18. ACETAMINOPHEN [Concomitant]
     Active Substance: ACETAMINOPHEN
     Indication: Pain
  19. AMOXICILLIN [Concomitant]
     Active Substance: AMOXICILLIN
  20. AMMONIUM CHLORIDE\DEXTROMETHORPHAN\SODIUM CITRATE [Concomitant]
     Active Substance: AMMONIUM CHLORIDE\DEXTROMETHORPHAN\SODIUM CITRATE
  21. AZITHROMYCIN [Concomitant]
     Active Substance: AZITHROMYCIN
  22. NAPROXEN [Concomitant]
     Active Substance: NAPROXEN
  23. PREDNISONE [Concomitant]
     Active Substance: PREDNISONE
  24. CYCLOBENZAPRINE [Concomitant]
     Active Substance: CYCLOBENZAPRINE
  25. NITROFURANTOIN [Concomitant]
     Active Substance: NITROFURANTOIN
  26. SINGULAIR [Concomitant]
     Active Substance: MONTELUKAST SODIUM
  27. PROAIR HFA [Concomitant]
     Active Substance: ALBUTEROL SULFATE
  28. MELOXICAM [Concomitant]
     Active Substance: MELOXICAM
  29. KIONEX [Concomitant]
     Active Substance: SODIUM POLYSTYRENE SULFONATE
  30. FUROSEMIDE [Concomitant]
     Active Substance: FUROSEMIDE
  31. AMLODIPINE BESYLATE [Concomitant]
     Active Substance: AMLODIPINE BESYLATE
  32. CLONIDINE [Concomitant]
     Active Substance: CLONIDINE
  33. RENAGEL [Concomitant]
     Active Substance: SEVELAMER HYDROCHLORIDE
  34. METOPROLOL TARTRATE [Concomitant]
     Active Substance: METOPROLOL TARTRATE
  35. LORAZEPAM [Concomitant]
     Active Substance: LORAZEPAM
  36. SULFAMETHOXAZOLE\TRIMETHOPRIM [Concomitant]
     Active Substance: SULFAMETHOXAZOLE\TRIMETHOPRIM
  37. BENICAR [Concomitant]
     Active Substance: OLMESARTAN MEDOXOMIL
  38. DOXAZOSIN [Concomitant]
     Active Substance: DOXAZOSIN MESYLATE
  39. LEVETIRACETAM [Concomitant]
     Active Substance: LEVETIRACETAM

REACTIONS (10)
  - Chronic kidney disease [Not Recovered/Not Resolved]
  - End stage renal disease [Not Recovered/Not Resolved]
  - Renal failure [Unknown]
  - Acute kidney injury [Unknown]
  - Hyperparathyroidism secondary [Unknown]
  - Nephrogenic anaemia [Unknown]
  - Hyperkalaemia [Unknown]
  - Hyperphosphataemia [Unknown]
  - Metabolic acidosis [Unknown]
  - Glomerulonephritis [Unknown]

NARRATIVE: CASE EVENT DATE: 20100729
